FAERS Safety Report 8036374-2 (Version None)
Quarter: 2012Q1

REPORT INFORMATION
  Report Type: 
  Country: None (occurrence: None)
  Receive Date: 20120111
  Receipt Date: 20120109
  Transmission Date: 20120608
  Serious: No
  Sender: FDA-Public Use
  Company Number: PHEH2012US000849

PATIENT
  Age: 80 Year
  Sex: Male

DRUGS (11)
  1. LANTUS [Concomitant]
  2. SYNTHROID [Concomitant]
  3. PAXIL [Concomitant]
  4. AMLODIPINE [Concomitant]
  5. TRAZODONE HCL [Concomitant]
  6. TASIGNA [Suspect]
     Dosage: UNK UKN, UNK
  7. COREG [Concomitant]
  8. NEXIUM [Concomitant]
  9. ALLOPURINOL [Concomitant]
  10. ALTACE [Concomitant]
  11. TORSEMIDE [Concomitant]

REACTIONS (1)
  - PRURITUS [None]
